FAERS Safety Report 5808345-5 (Version None)
Quarter: 2008Q3

REPORT INFORMATION
  Report Type: 
  Country: None (occurrence: None)
  Receive Date: 20080714
  Receipt Date: 20080707
  Transmission Date: 20090109
  Serious: Yes (Other)
  Sender: FDA-Public Use
  Company Number: US-BAYER-200825290NA

PATIENT
  Age: 65 Year
  Sex: Male
  Weight: 79 kg

DRUGS (2)
  1. NEXAVAR [Suspect]
     Indication: HEAD AND NECK CANCER
     Dosage: TOTAL DAILY DOSE: 800 MG  UNIT DOSE: 200 MG
     Route: 048
     Dates: start: 20080602, end: 20080609
  2. CHEMO (NOS) [Concomitant]
     Dates: start: 20080611

REACTIONS (3)
  - CELLULITIS [None]
  - PLATELET COUNT DECREASED [None]
  - TUMOUR HAEMORRHAGE [None]
